FAERS Safety Report 25858911 (Version 1)
Quarter: 2025Q3

REPORT INFORMATION
  Report Type: Spontaneous
  Country: GB (occurrence: GB)
  Receive Date: 20250929
  Receipt Date: 20250929
  Transmission Date: 20251021
  Serious: Yes (Life-Threatening, Other)
  Sender: GILEAD
  Company Number: GB-VIIV HEALTHCARE-IE2025115488

PATIENT
  Age: 50 Year
  Sex: Male

DRUGS (3)
  1. LENACAPAVIR [Suspect]
     Active Substance: LENACAPAVIR
     Indication: HIV infection
     Route: 065
     Dates: start: 202407
  2. CABOTEGRAVIR [Suspect]
     Active Substance: CABOTEGRAVIR
     Indication: HIV infection
     Route: 065
     Dates: start: 202209
  3. RILPIVIRINE [Suspect]
     Active Substance: RILPIVIRINE
     Indication: HIV infection
     Route: 065

REACTIONS (3)
  - Blood HIV RNA increased [Recovering/Resolving]
  - Hepatitis C [Unknown]
  - Labelled drug-drug interaction medication error [Unknown]
